FAERS Safety Report 15633023 (Version 2)
Quarter: 2018Q4

REPORT INFORMATION
  Report Type: Spontaneous
  Country: US (occurrence: US)
  Receive Date: 20181119
  Receipt Date: 20181227
  Transmission Date: 20190205
  Serious: Yes (Other)
  Sender: FDA-Public Use
  Company Number: US-BAYER-2018-209088

PATIENT
  Age: 22 Year
  Sex: Male

DRUGS (2)
  1. KOGENATE FS [Suspect]
     Active Substance: ANTIHEMOPHILIC FACTOR, HUMAN RECOMBINANT
     Indication: WOUND SECRETION
  2. KOGENATE FS [Suspect]
     Active Substance: ANTIHEMOPHILIC FACTOR, HUMAN RECOMBINANT
     Indication: FACTOR VIII DEFICIENCY
     Dosage: 2500 U, PRIOR TO PRECEDURE THEN PRIOR TO EACH SUBSEQUENT
     Route: 042
     Dates: start: 20130807

REACTIONS (2)
  - Post procedural discharge [Not Recovered/Not Resolved]
  - Keloid scar [None]

NARRATIVE: CASE EVENT DATE: 2018
